FAERS Safety Report 8799924 (Version 1)
Quarter: 2012Q4

REPORT INFORMATION
  Report Type: Spontaneous
  Country: IT (occurrence: None)
  Receive Date: 20120917
  Receipt Date: 20120917
  Transmission Date: 20130627
  Serious: Yes (Other)
  Sender: FDA-Public Use
  Company Number: DSA_59443_2012

PATIENT

DRUGS (8)
  1. LEUCOVORIN [Suspect]
     Indication: COLORECTAL CANCER METASTATIC
     Dosage: (200 mg/m2/day (Every other week) Intravenous (not otherwise specified)),
  2. LEUCOVORIN [Suspect]
     Indication: COLORECTAL CANCER METASTATIC
     Dosage: (500 mg/m2 (Every other week) Intravenous (not otherwise specified))
  3. ANTIEMETICS AND ANTINAUSEANTS [Concomitant]
  4. FLUOROURACIL [Suspect]
     Indication: COLORECTAL CANCER METASTATIC
     Dosage: 400 mg/m2/day (Every other week) Intravenous bolus),
  5. FLUOROURACIL [Suspect]
     Indication: COLORECTAL CANCER METASTATIC
     Dosage: 600 mg/m2/day (Every other week) Intravenous (not otherwise specified))
  6. FLUOROURACIL [Suspect]
     Indication: COLORECTAL CANCER METASTATIC
     Dosage: (1.5 g/m2 (Every other week) Intravenous (not otherwise specified))
  7. OXALIPLATIN [Suspect]
     Indication: COLORECTAL CANCER METASTATIC
     Dosage: 85 mg/m2 (Every other week) Intravenous (not otherwise specified))
  8. OXALIPLATIN [Suspect]
     Indication: COLORECTAL CANCER METASTATIC
     Dosage: (100 mg/m2 (Every other week) Intravenous (not otherwise specified))

REACTIONS (1)
  - Neurotoxicity [None]
